FAERS Safety Report 7619245-2 (Version None)
Quarter: 2011Q3

REPORT INFORMATION
  Report Type: 
  Country: None (occurrence: None)
  Receive Date: 20110718
  Receipt Date: 20110707
  Transmission Date: 20111222
  Serious: Yes (Hospitalization, Disabling, Other)
  Sender: FDA-Public Use
  Company Number: US-ASTRAZENECA-2011SE10938

PATIENT
  Age: 59 Year
  Sex: Female

DRUGS (3)
  1. CRESTOR [Suspect]
     Route: 048
  2. CRESTOR [Suspect]
     Route: 048
  3. NEXIUM [Concomitant]
     Route: 048

REACTIONS (12)
  - CARDIAC DISORDER [None]
  - ANAESTHETIC COMPLICATION [None]
  - HOSPITALISATION [None]
  - SOMNOLENCE [None]
  - CARDIAC OPERATION [None]
  - CORNEAL DEPOSITS [None]
  - BLOOD CHOLESTEROL INCREASED [None]
  - THERAPEUTIC RESPONSE UNEXPECTED [None]
  - VOMITING [None]
  - LEG AMPUTATION [None]
  - PAIN [None]
  - DRUG DOSE OMISSION [None]
